FAERS Safety Report 20873073 (Version 1)
Quarter: 2022Q2

REPORT INFORMATION
  Report Type: Spontaneous
  Country: US (occurrence: US)
  Receive Date: 20220525
  Receipt Date: 20220525
  Transmission Date: 20220720
  Serious: Yes (Hospitalization)
  Sender: FDA-Public Use
  Company Number: US-MYLANLABS-2022M1038542

PATIENT
  Age: 60 Year
  Sex: Male

DRUGS (1)
  1. PREDNISONE [Suspect]
     Active Substance: PREDNISONE
     Indication: Haemophagocytic lymphohistiocytosis
     Dosage: 1 MILLIGRAM/KILOGRAM(FOR 5 DAYS)
     Route: 065

REACTIONS (1)
  - Treatment failure [Unknown]
